FAERS Safety Report 17188753 (Version 1)
Quarter: 2019Q4

REPORT INFORMATION
  Report Type: Other
  Country: US (occurrence: US)
  Receive Date: 20191222
  Receipt Date: 20191222
  Transmission Date: 20200122
  Serious: Yes (Other)
  Sender: FDA-Public Use
  Company Number: US-ACORDA-ACO_161970_2019

PATIENT
  Sex: Male

DRUGS (1)
  1. INBRIJA [Suspect]
     Active Substance: LEVODOPA
     Indication: PARKINSON^S DISEASE
     Dosage: CONTENTS OF 2 CAPSULES (84 MILLIGRAM), PRN UP TO FIVE TIMES PER DAY
     Dates: start: 20190930, end: 20191021

REACTIONS (2)
  - Cardiac failure congestive [Unknown]
  - Oropharyngeal discomfort [Unknown]
